FAERS Safety Report 7052246-4 (Version None)
Quarter: 2010Q4

REPORT INFORMATION
  Report Type: 
  Country: None (occurrence: None)
  Receive Date: 20101018
  Receipt Date: 20101018
  Transmission Date: 20110411
  Serious: Yes (Other)
  Sender: FDA-Public Use
  Company Number: None

PATIENT
  Sex: Female
  Weight: 59.2851 kg

DRUGS (1)
  1. CEFTRIAXONE [Suspect]
     Indication: URINARY TRACT INFECTION
     Dosage: 1G QD IM
     Route: 030
     Dates: start: 20100919, end: 20100919

REACTIONS (5)
  - PRURITUS [None]
  - PRURITUS GENERALISED [None]
  - RASH GENERALISED [None]
  - RASH MACULO-PAPULAR [None]
  - URTICARIA [None]
